FAERS Safety Report 17551684 (Version 1)
Quarter: 2020Q1

REPORT INFORMATION
  Report Type: Spontaneous
  Country: CN (occurrence: CN)
  Receive Date: 20200317
  Receipt Date: 20200317
  Transmission Date: 20200409
  Serious: Yes (Hospitalization, Other)
  Sender: FDA-Public Use
  Company Number: CN-PFIZER INC-2020111362

PATIENT
  Age: 74 Year
  Sex: Female

DRUGS (2)
  1. AROMASIN [Concomitant]
     Active Substance: EXEMESTANE
     Indication: BREAST CANCER FEMALE
     Dosage: UNK
     Dates: start: 20200205
  2. IBRANCE [Suspect]
     Active Substance: PALBOCICLIB
     Indication: BREAST CANCER FEMALE
     Dosage: 1 DF, CYCLIC (FOR 21 CONSECUTIVE DAYS)
     Route: 048
     Dates: start: 20200205, end: 2020

REACTIONS (6)
  - Hepatorenal failure [Unknown]
  - Coma [Unknown]
  - Oxygen saturation decreased [Unknown]
  - Hepatic encephalopathy [Unknown]
  - Neoplasm progression [Unknown]
  - Neutrophil count decreased [Unknown]

NARRATIVE: CASE EVENT DATE: 2020
